FAERS Safety Report 4748049-3 (Version None)
Quarter: 2005Q3

REPORT INFORMATION
  Report Type: 
  Country: None (occurrence: None)
  Receive Date: 20050818
  Receipt Date: 20050808
  Transmission Date: 20060218
  Serious: Yes (Other)
  Sender: FDA-Public Use
  Company Number: BE-BRISTOL-MYERS SQUIBB COMPANY-13080197

PATIENT
  Age: 45 Year
  Sex: Female

DRUGS (3)
  1. CISPLATIN [Suspect]
     Indication: OVARIAN CANCER
     Route: 042
     Dates: start: 20050330
  2. ETOPOSIDE [Suspect]
     Indication: OVARIAN CANCER
     Dates: start: 20050330
  3. BLEOMYCIN [Suspect]
     Indication: OVARIAN CANCER
     Dates: start: 20050330

REACTIONS (7)
  - ASTHENIA [None]
  - FEELING HOT [None]
  - NAUSEA [None]
  - PARAESTHESIA [None]
  - RESPIRATORY DISTRESS [None]
  - VISION BLURRED [None]
  - VOMITING [None]
